FAERS Safety Report 14813940 (Version 1)
Quarter: 2018Q2

REPORT INFORMATION
  Report Type: Spontaneous
  Country: FR (occurrence: FR)
  Receive Date: 20180426
  Receipt Date: 20180426
  Transmission Date: 20180711
  Serious: Yes (Other)
  Sender: FDA-Public Use
  Company Number: FR-MERCK KGAA-2046580

PATIENT
  Age: 40 Year
  Sex: Female

DRUGS (1)
  1. NOVOTHYROX [Suspect]
     Active Substance: LEVOTHYROXINE SODIUM
     Indication: PRODUCT USED FOR UNKNOWN INDICATION

REACTIONS (24)
  - Pain [None]
  - Pelvic pain [None]
  - Emotional distress [None]
  - Apathy [None]
  - Paranoia [None]
  - Alanine aminotransferase increased [None]
  - Mood swings [None]
  - Tri-iodothyronine decreased [Recovered/Resolved]
  - Hot flush [None]
  - Fatigue [None]
  - Weight increased [None]
  - Thyroglobulin decreased [None]
  - Red blood cell count decreased [None]
  - Mood altered [None]
  - Crying [None]
  - Social avoidant behaviour [None]
  - Insomnia [None]
  - Gait inability [None]
  - Thyroxine free increased [None]
  - Myalgia [None]
  - Blood thyroid stimulating hormone decreased [None]
  - Arthralgia [None]
  - Burning sensation [None]
  - Alopecia [None]

NARRATIVE: CASE EVENT DATE: 20170323
